FAERS Safety Report 5138309-9 (Version None)
Quarter: 2006Q4

REPORT INFORMATION
  Report Type: 
  Country: None (occurrence: None)
  Receive Date: 20061030
  Receipt Date: 20060817
  Transmission Date: 20070319
  Serious: No
  Sender: FDA-Public Use
  Company Number: US-GLAXOSMITHKLINE-A0617150A

PATIENT
  Age: 68 Year
  Sex: Male

DRUGS (10)
  1. ADVAIR HFA [Suspect]
     Indication: CHRONIC OBSTRUCTIVE PULMONARY DISEASE
     Dosage: 1PUFF TWICE PER DAY
     Route: 055
     Dates: start: 20060301
  2. COMBIVENT [Concomitant]
  3. DILTIAZEM HCL [Concomitant]
  4. DIGOXIN [Concomitant]
  5. ZANTAC [Concomitant]
  6. METFORMIN HCL [Concomitant]
  7. ALLEGRA [Concomitant]
  8. LIPITOR [Concomitant]
  9. DIOVAN [Concomitant]
  10. LASIX [Concomitant]

REACTIONS (4)
  - COUGH [None]
  - DRUG INEFFECTIVE [None]
  - PHARMACEUTICAL PRODUCT COMPLAINT [None]
  - WHEEZING [None]
